FAERS Safety Report 6874167-X (Version None)
Quarter: 2010Q3

REPORT INFORMATION
  Report Type: 
  Country: None (occurrence: None)
  Receive Date: 20100723
  Receipt Date: 20090708
  Transmission Date: 20110219
  Serious: No
  Sender: FDA-Public Use
  Company Number: US-PFIZER INC-2009213624

PATIENT
  Sex: Female
  Weight: 70.748 kg

DRUGS (4)
  1. CHANTIX [Suspect]
     Dosage: 0.5 MG, 1X/DAY
     Dates: start: 20090505
  2. ZOLOFT [Concomitant]
     Dosage: UNK
  3. ACETYLSALICYLIC ACID [Concomitant]
     Dosage: UNK
  4. PRAVASTATIN [Concomitant]
     Dosage: UNK

REACTIONS (5)
  - EMOTIONAL DISTRESS [None]
  - EUPHORIC MOOD [None]
  - EYE PAIN [None]
  - OCULAR HYPERAEMIA [None]
  - STRESS [None]
